FAERS Safety Report 4323910-2 (Version None)
Quarter: 2004Q1

REPORT INFORMATION
  Report Type: 
  Country: None (occurrence: None)
  Receive Date: 20040323
  Receipt Date: 20040309
  Transmission Date: 20041129
  Serious: Yes (Hospitalization)
  Sender: FDA-Public Use
  Company Number: AU-JNJFOC-20040302581

PATIENT
  Sex: Female

DRUGS (4)
  1. TRAMADOL HCL [Suspect]
     Dosage: ORAL
     Route: 048
  2. DILANTIN (PHENYTOIN SODIUIM) [Concomitant]
  3. GABAPENTIN [Concomitant]
  4. DOXEPINE (DOXEPIN) [Concomitant]

REACTIONS (2)
  - CONVULSION [None]
  - LOSS OF CONSCIOUSNESS [None]
